FAERS Safety Report 13239945 (Version 1)
Quarter: 2017Q1

REPORT INFORMATION
  Report Type: Spontaneous
  Country: US (occurrence: US)
  Receive Date: 20170216
  Receipt Date: 20170216
  Transmission Date: 20170428
  Serious: No
  Sender: FDA-Public Use
  Company Number: US-PFIZER INC-2017064139

PATIENT
  Sex: Female

DRUGS (1)
  1. XELJANZ [Suspect]
     Active Substance: TOFACITINIB CITRATE
     Dosage: 5 MG, UNK

REACTIONS (17)
  - Alopecia [Unknown]
  - Dry throat [Unknown]
  - Sinus disorder [Unknown]
  - Rash [Unknown]
  - Nasal dryness [Unknown]
  - Musculoskeletal stiffness [Unknown]
  - Mouth ulceration [Unknown]
  - Fatigue [Unknown]
  - Photosensitivity reaction [Unknown]
  - Arthralgia [Unknown]
  - Blood pressure increased [Unknown]
  - Synovitis [Unknown]
  - Asthenia [Unknown]
  - Dry eye [Unknown]
  - Muscle atrophy [Unknown]
  - Dry skin [Unknown]
  - Myalgia [Unknown]
